FAERS Safety Report 9751565 (Version 1)
Quarter: 2013Q4

REPORT INFORMATION
  Report Type: Spontaneous
  Country: DE (occurrence: DE)
  Receive Date: 20131212
  Receipt Date: 20131212
  Transmission Date: 20140711
  Serious: Yes (Death, Hospitalization)
  Sender: FDA-Public Use
  Company Number: PHHY2013DE142471

PATIENT
  Age: 62 Year
  Sex: Male

DRUGS (12)
  1. 5-FLUOROURACIL [Suspect]
     Indication: COLORECTAL CANCER
     Dosage: 2000 MG/M2, UNK
  2. 5-FLUOROURACIL [Suspect]
     Indication: METASTASES TO LIVER
  3. FOLINIC ACID [Suspect]
     Indication: COLORECTAL CANCER
     Dosage: 500 MG/M2, 24 HOUR INFUSION
  4. FOLINIC ACID [Suspect]
     Indication: METASTASES TO LIVER
  5. OXALIPLATIN [Suspect]
     Indication: COLORECTAL CANCER
     Dosage: 85 MG/M2, QW2
  6. OXALIPLATIN [Suspect]
     Indication: METASTASES TO LIVER
  7. IRINOTECAN [Suspect]
     Indication: COLORECTAL CANCER
  8. IRINOTECAN [Suspect]
     Indication: METASTASES TO LIVER
  9. BEVACIZUMAB [Suspect]
     Indication: COLORECTAL CANCER
  10. CETUXIMAB [Suspect]
     Indication: COLORECTAL CANCER
  11. RADIOTHERAPY [Suspect]
     Indication: COLORECTAL CANCER
  12. PHENPROCOUMON [Concomitant]
     Indication: ATRIAL FIBRILLATION

REACTIONS (14)
  - Cardiac failure [Fatal]
  - Circulatory collapse [Fatal]
  - Metastases to liver [Fatal]
  - Granuloma [Recovered/Resolved]
  - Pleural calcification [Recovering/Resolving]
  - Dyspnoea [Recovered/Resolved]
  - Pyrexia [Recovered/Resolved]
  - Pleural effusion [Recovered/Resolved]
  - Lung consolidation [Recovered/Resolved]
  - Respiratory distress [Recovered/Resolved]
  - Respiratory failure [Recovered/Resolved]
  - Pulmonary granuloma [Recovered/Resolved]
  - Pleural fibrosis [Recovering/Resolving]
  - Inflammatory marker increased [Recovered/Resolved]
